FAERS Safety Report 17807292 (Version 1)
Quarter: 2020Q2

REPORT INFORMATION
  Report Type: Spontaneous
  Country: US (occurrence: US)
  Receive Date: 20200520
  Receipt Date: 20200520
  Transmission Date: 20200714
  Serious: No
  Sender: FDA-Public Use
  Company Number: US-PFIZER INC-2016344565

PATIENT
  Age: 71 Year
  Sex: Female
  Weight: 65.32 kg

DRUGS (2)
  1. GENOTROPIN MQ [Suspect]
     Active Substance: SOMATROPIN
     Indication: GROWTH HORMONE DEFICIENCY
     Dosage: 1.6 MG, 1X/DAY (AT NIGHT)
     Route: 058
     Dates: start: 200309
  2. GENOTROPIN MQ [Suspect]
     Active Substance: SOMATROPIN
     Dosage: 1.6 MG, 1X/DAY(BY INJECTION)
     Route: 058
     Dates: end: 20200513

REACTIONS (4)
  - Product use in unapproved indication [Unknown]
  - Off label use [Unknown]
  - Product dose omission [Unknown]
  - Overweight [Unknown]
